FAERS Safety Report 4442427-8 (Version None)
Quarter: 2004Q3

REPORT INFORMATION
  Report Type: 
  Country: None (occurrence: None)
  Receive Date: 20040903
  Receipt Date: 20040706
  Transmission Date: 20050211
  Serious: Yes (Other)
  Sender: FDA-Public Use
  Company Number: 2004UW13911

PATIENT
  Age: 69 Year
  Sex: Female
  Weight: 58.514 kg

DRUGS (4)
  1. CRESTOR [Suspect]
     Indication: BLOOD CHOLESTEROL INCREASED
     Dosage: 10 MG QD PO
     Route: 048
     Dates: start: 20031110, end: 20040401
  2. CRESTOR [Suspect]
     Indication: BLOOD CHOLESTEROL INCREASED
     Dosage: 5 MG QD PO
     Route: 048
     Dates: start: 20040401, end: 20040628
  3. MULTIVITAMIN [Concomitant]
  4. ASPIRIN [Concomitant]

REACTIONS (8)
  - ASTHENIA [None]
  - CHILLS [None]
  - CONSTIPATION [None]
  - FATIGUE [None]
  - HEADACHE [None]
  - MUSCLE CONTRACTIONS INVOLUNTARY [None]
  - MUSCLE FATIGUE [None]
  - PAIN [None]
